FAERS Safety Report 7946382-5 (Version None)
Quarter: 2011Q4

REPORT INFORMATION
  Report Type: 
  Country: None (occurrence: None)
  Receive Date: 20111129
  Receipt Date: 20111123
  Transmission Date: 20120403
  Serious: Yes (Hospitalization)
  Sender: FDA-Public Use
  Company Number: US-MERCK-0606USA05133

PATIENT
  Age: 73 Year
  Sex: Female

DRUGS (6)
  1. ZETIA [Suspect]
     Route: 048
     Dates: start: 20100101
  2. ANAPRIL [Concomitant]
     Route: 065
  3. ZETIA [Suspect]
     Indication: BLOOD CHOLESTEROL INCREASED
     Route: 048
     Dates: start: 20050101
  4. ASPIRIN [Concomitant]
     Route: 065
  5. ZETIA [Suspect]
     Route: 048
     Dates: start: 20091101
  6. METOPROLOL [Concomitant]
     Route: 065

REACTIONS (16)
  - MYOCARDIAL INFARCTION [None]
  - URINE ANALYSIS ABNORMAL [None]
  - GINGIVAL DISORDER [None]
  - ORAL DISCOMFORT [None]
  - NAUSEA [None]
  - MUSCULAR WEAKNESS [None]
  - GINGIVAL PAIN [None]
  - DIZZINESS [None]
  - CONSTIPATION [None]
  - DIARRHOEA [None]
  - SALIVA ALTERED [None]
  - DYSGEUSIA [None]
  - GALLBLADDER PAIN [None]
  - FATIGUE [None]
  - PAIN IN EXTREMITY [None]
  - MYALGIA [None]
